FAERS Safety Report 5754023-0 (Version None)
Quarter: 2008Q2

REPORT INFORMATION
  Report Type: 
  Country: None (occurrence: None)
  Receive Date: 20080530
  Receipt Date: 20080515
  Transmission Date: 20081010
  Serious: Yes (Congenital Anomaly)
  Sender: FDA-Public Use
  Company Number: PHHY2008GB09009

PATIENT
  Weight: 2.86 kg

DRUGS (6)
  1. GLEEVEC [Suspect]
     Dosage: MATERNAL DOSE: 400 MG QD
     Route: 064
     Dates: end: 20050729
  2. INTRON A [Suspect]
     Indication: CHRONIC LYMPHOCYTIC LEUKAEMIA
     Dosage: UNK
     Route: 064
     Dates: end: 20050729
  3. INTRON A [Suspect]
     Dosage: MATERNAL DOSE: 3 MIU QW
     Route: 064
     Dates: start: 20051107
  4. NEUPOGEN [Concomitant]
     Dosage: MATERNAL DOSE: 40 MIU QW
     Route: 064
     Dates: end: 20050729
  5. IMMUNOGLOBULINS [Concomitant]
     Dosage: MATERNAL DOSE: 500 IU
     Route: 064
     Dates: start: 20060117, end: 20060117
  6. IMMUNOGLOBULINS [Concomitant]
     Dosage: MATERNAL DOSE: 500 IU
     Route: 064
     Dates: start: 20060228, end: 20060228

REACTIONS (2)
  - DRUG EXPOSURE DURING PREGNANCY [None]
  - FINGER HYPOPLASIA [None]
